FAERS Safety Report 19752060 (Version 1)
Quarter: 2021Q3

REPORT INFORMATION
  Report Type: Spontaneous
  Country: US (occurrence: US)
  Receive Date: 20210826
  Receipt Date: 20210826
  Transmission Date: 20211014
  Serious: No
  Sender: FDA-Public Use
  Company Number: US-ASTRAZENECA-2021A676848

PATIENT
  Sex: Female
  Weight: 60.3 kg

DRUGS (1)
  1. FASENRA [Suspect]
     Active Substance: BENRALIZUMAB
     Indication: CHRONIC OBSTRUCTIVE PULMONARY DISEASE
     Route: 058
     Dates: start: 20210720

REACTIONS (6)
  - Fatigue [Unknown]
  - Dysphonia [Unknown]
  - Speech disorder [Unknown]
  - Off label use [Unknown]
  - Dyspnoea [Unknown]
  - Dizziness [Unknown]
